FAERS Safety Report 15223497 (Version 1)
Quarter: 2018Q3

REPORT INFORMATION
  Report Type: Spontaneous
  Country: US (occurrence: US)
  Receive Date: 20180731
  Receipt Date: 20180731
  Transmission Date: 20181010
  Serious: No
  Sender: FDA-Public Use
  Company Number: US-ENDO PHARMACEUTICALS INC-2018-014682

PATIENT
  Sex: Male

DRUGS (1)
  1. TESTOPEL [Suspect]
     Active Substance: TESTOSTERONE
     Indication: PRODUCT USED FOR UNKNOWN INDICATION
     Dosage: UNK, UNKNOWN (ONLY ONE DOSE IMPLANTED)
     Route: 065

REACTIONS (3)
  - Back disorder [Unknown]
  - Prescribed underdose [Unknown]
  - Spinal disorder [Unknown]

NARRATIVE: CASE EVENT DATE: 201712
